FAERS Safety Report 8035099-7 (Version None)
Quarter: 2012Q1

REPORT INFORMATION
  Report Type: 
  Country: None (occurrence: None)
  Receive Date: 20120111
  Receipt Date: 20120105
  Transmission Date: 20120608
  Serious: Yes (Hospitalization)
  Sender: FDA-Public Use
  Company Number: US-BIOGENIDEC-2010BI043438

PATIENT
  Age: 64 Year
  Sex: Female
  Weight: 103 kg

DRUGS (3)
  1. AMPYRA [Concomitant]
     Indication: GAIT DISTURBANCE
     Dates: start: 20100701
  2. ARTHROTEC [Concomitant]
     Indication: BACK DISORDER
  3. TYSABRI [Suspect]
     Indication: MULTIPLE SCLEROSIS
     Route: 042
     Dates: start: 20100604

REACTIONS (10)
  - CONTUSION [None]
  - VITAMIN D DECREASED [None]
  - SKELETAL INJURY [None]
  - STRESS FRACTURE [None]
  - ARTHRALGIA [None]
  - ANAEMIA [None]
  - CHONDROPATHY [None]
  - OSTEONECROSIS [None]
  - ACQUIRED CLAW TOE [None]
  - SYNCOPE [None]
